FAERS Safety Report 7012839-7 (Version None)
Quarter: 2010Q3

REPORT INFORMATION
  Report Type: 
  Country: None (occurrence: None)
  Receive Date: 20100924
  Receipt Date: 20100921
  Transmission Date: 20110219
  Serious: Yes (Life-Threatening)
  Sender: FDA-Public Use
  Company Number: B0676025A

PATIENT
  Sex: Female

DRUGS (7)
  1. CEFUROXIME [Suspect]
     Route: 065
  2. SYMBICORT [Suspect]
     Indication: COUGH
     Dosage: 2PUFF TWICE PER DAY
     Route: 055
     Dates: start: 20100603
  3. CRESTOR [Concomitant]
     Route: 048
  4. EMCONCOR [Concomitant]
  5. ASAFLOW [Concomitant]
  6. PAROXETINE HCL [Concomitant]
  7. METFORMAX [Concomitant]

REACTIONS (3)
  - ANAPHYLACTIC SHOCK [None]
  - RASH GENERALISED [None]
  - RESPIRATORY DISORDER [None]
